FAERS Safety Report 11886708 (Version 2)
Quarter: 2016Q1

REPORT INFORMATION
  Report Type: Spontaneous
  Country: US (occurrence: US)
  Receive Date: 20160104
  Receipt Date: 20160106
  Transmission Date: 20160526
  Serious: No
  Sender: FDA-Public Use
  Company Number: US-PFIZER INC-2015477809

PATIENT
  Age: 52 Year
  Sex: Female

DRUGS (3)
  1. XELJANZ [Suspect]
     Active Substance: TOFACITINIB CITRATE
     Dosage: 5 MG, UNK
  2. PREDNISONE. [Concomitant]
     Active Substance: PREDNISONE
  3. LEFLUNOMIDE. [Suspect]
     Active Substance: LEFLUNOMIDE
     Dosage: UNK

REACTIONS (9)
  - Restless legs syndrome [Unknown]
  - Affect lability [Unknown]
  - Pain [Unknown]
  - Swelling [Unknown]
  - Gait disturbance [Unknown]
  - Abdominal discomfort [Unknown]
  - Diarrhoea [Unknown]
  - Insomnia [Unknown]
  - Crying [Unknown]
